FAERS Safety Report 8390776-3 (Version None)
Quarter: 2012Q2

REPORT INFORMATION
  Report Type: 
  Country: None (occurrence: None)
  Receive Date: 20120529
  Receipt Date: 20120520
  Transmission Date: 20120825
  Serious: Yes (Hospitalization)
  Sender: FDA-Public Use
  Company Number: EG-SANOFI-AVENTIS-2012SA035819

PATIENT
  Age: 19 Year
  Sex: Male

DRUGS (1)
  1. LANTUS [Suspect]
     Dosage: DOSE:26 UNIT(S)
     Route: 058
     Dates: start: 20091031, end: 20120317

REACTIONS (3)
  - DIABETIC HYPERGLYCAEMIC COMA [None]
  - INFLUENZA [None]
  - HEADACHE [None]
